FAERS Safety Report 6466529-X (Version None)
Quarter: 2009Q4

REPORT INFORMATION
  Report Type: 
  Country: None (occurrence: None)
  Receive Date: 20091202
  Receipt Date: 20091123
  Transmission Date: 20100525
  Serious: Yes (Hospitalization)
  Sender: FDA-Public Use
  Company Number: GB-ABBOTT-09P-167-0608905-00

PATIENT
  Age: 50 Year
  Sex: Male
  Weight: 73 kg

DRUGS (6)
  1. RITONAVIR [Suspect]
     Indication: HIV INFECTION
     Dates: start: 20031120, end: 20061024
  2. REYATAZ [Suspect]
     Indication: HIV INFECTION
     Route: 048
     Dates: start: 20031120, end: 20061024
  3. PRAVASTATIN [Concomitant]
     Indication: HYPERLIPIDAEMIA
     Route: 048
  4. TRUVADA [Concomitant]
     Indication: HIV INFECTION
     Dosage: 513 DOSAGE FORMS TAKEN CUMULATIVE TO FIRST REACTION
     Route: 048
     Dates: start: 20050526
  5. PRAVASTATIN SODIUM [Concomitant]
     Indication: HYPERLIPIDAEMIA
     Route: 048
  6. LOPINAVIR AND RITONAVIR [Concomitant]
     Indication: ANTIRETROVIRAL THERAPY
     Dosage: NOT REPORTED

REACTIONS (2)
  - NEPHROLITHIASIS [None]
  - RENAL COLIC [None]
